FAERS Safety Report 9654881 (Version 1)
Quarter: 2013Q4

REPORT INFORMATION
  Report Type: Not Available
  Country: US (occurrence: US)
  Receive Date: 20131029
  Receipt Date: 20131029
  Transmission Date: 20140711
  Serious: No
  Sender: FDA-Public Use
  Company Number: US-PURDUE-USA-2012-0090180

PATIENT
  Sex: 0

DRUGS (1)
  1. OXYCONTIN (NDA 22-272) [Suspect]
     Indication: PAIN
     Dosage: 20 MG, UNK

REACTIONS (8)
  - Foreign body [Unknown]
  - Drug effect decreased [Unknown]
  - Vomiting [Unknown]
  - Change of bowel habit [Unknown]
  - Drug ineffective [Unknown]
  - Drug effect delayed [Unknown]
  - Quality of life decreased [Unknown]
  - Abdominal discomfort [Unknown]
